FAERS Safety Report 25994036 (Version 1)
Quarter: 2025Q4

REPORT INFORMATION
  Report Type: Spontaneous
  Country: US (occurrence: US)
  Receive Date: 20251104
  Receipt Date: 20251104
  Transmission Date: 20260117
  Serious: Yes (Hospitalization, Other)
  Sender: GALDERMA
  Company Number: US-GALDERMA-US2025022173

PATIENT

DRUGS (1)
  1. NEMLUVIO [Suspect]
     Active Substance: NEMOLIZUMAB-ILTO
     Indication: Dermatitis atopic
     Route: 058

REACTIONS (6)
  - Thrombosis [Recovering/Resolving]
  - Memory impairment [Recovering/Resolving]
  - Upper limb fracture [Recovering/Resolving]
  - Aphasia [Recovering/Resolving]
  - Psoriasis [Recovering/Resolving]
  - Product dose omission issue [Recovered/Resolved]
